FAERS Safety Report 8183051-3 (Version None)
Quarter: 2012Q1

REPORT INFORMATION
  Report Type: 
  Country: None (occurrence: None)
  Receive Date: 20120305
  Receipt Date: 20120229
  Transmission Date: 20120608
  Serious: Yes (Death)
  Sender: FDA-Public Use
  Company Number: US-CELGENEUS-163-21880-12030105

PATIENT
  Sex: Male

DRUGS (3)
  1. SOTALOL HCL [Concomitant]
     Dosage: 80 MILLIGRAM
     Route: 048
  2. REVLIMID [Suspect]
     Dosage: 10 MILLIGRAM
     Route: 048
     Dates: start: 20111101
  3. AMLODIPINE [Concomitant]
     Dosage: 2.5 MILLIGRAM
     Route: 048

REACTIONS (1)
  - DEATH [None]
